FAERS Safety Report 6822012-0 (Version None)
Quarter: 2010Q3

REPORT INFORMATION
  Report Type: 
  Country: None (occurrence: None)
  Receive Date: 20100707
  Receipt Date: 20100707
  Transmission Date: 20110219
  Serious: Yes (Death, Hospitalization)
  Sender: FDA-Public Use
  Company Number: None

PATIENT
  Sex: Female
  Weight: 25.2 kg

DRUGS (4)
  1. DOXORUBICIN HYDROCHLORIDE [Suspect]
     Dosage: 50 MG
  2. VINCRISTINE SULFATE [Suspect]
     Dosage: 1.2 MG
  3. FLUOROURACIL [Suspect]
     Dosage: 500 MG
  4. CISPLATIN [Suspect]
     Dosage: 86 MG

REACTIONS (6)
  - ABDOMINAL PAIN [None]
  - BLOOD PRESSURE SYSTOLIC DECREASED [None]
  - CYANOSIS [None]
  - EJECTION FRACTION DECREASED [None]
  - PULSE ABSENT [None]
  - RESPIRATORY ARREST [None]
